FAERS Safety Report 6328447-7 (Version None)
Quarter: 2009Q3

REPORT INFORMATION
  Report Type: 
  Country: None (occurrence: None)
  Receive Date: 20090825
  Receipt Date: 20090702
  Transmission Date: 20100115
  Serious: No
  Sender: FDA-Public Use
  Company Number: US-ABBOTT-09P-163-0586601-00

PATIENT
  Sex: Female

DRUGS (1)
  1. SYNTHROID [Suspect]
     Indication: AUTOIMMUNE THYROIDITIS
     Route: 048

REACTIONS (6)
  - ALOPECIA [None]
  - CONSTIPATION [None]
  - MEMORY IMPAIRMENT [None]
  - OEDEMA [None]
  - SWELLING FACE [None]
  - WEIGHT LOSS POOR [None]
